FAERS Safety Report 15436344 (Version 3)
Quarter: 2018Q4

REPORT INFORMATION
  Report Type: Spontaneous
  Country: FR (occurrence: FR)
  Receive Date: 20180927
  Receipt Date: 20181106
  Transmission Date: 20190204
  Serious: Yes (Death, Hospitalization, Other)
  Sender: FDA-Public Use
  Company Number: FR-ABBVIE-18K-056-2501523-00

PATIENT
  Age: 45 Year
  Sex: Male
  Weight: 85 kg

DRUGS (3)
  1. VENETOCLAX. [Suspect]
     Active Substance: VENETOCLAX
     Route: 048
     Dates: start: 20180807, end: 201808
  2. VENETOCLAX. [Suspect]
     Active Substance: VENETOCLAX
     Indication: CHRONIC LYMPHOCYTIC LEUKAEMIA
     Route: 048
     Dates: start: 20180801, end: 201808
  3. VENETOCLAX. [Suspect]
     Active Substance: VENETOCLAX
     Route: 048
     Dates: start: 20180812, end: 20180812

REACTIONS (10)
  - Metabolic acidosis [Unknown]
  - Chronic lymphocytic leukaemia [Unknown]
  - Cardiac arrest [Fatal]
  - Hyperphosphataemia [Unknown]
  - Hyperkalaemia [Unknown]
  - Acute respiratory distress syndrome [Recovered/Resolved]
  - Dyspnoea [Unknown]
  - Tumour lysis syndrome [Fatal]
  - Hypercalcaemia [Unknown]
  - Hyperleukocytosis [Unknown]

NARRATIVE: CASE EVENT DATE: 201808
